FAERS Safety Report 21186137 (Version 1)
Quarter: 2022Q3

REPORT INFORMATION
  Report Type: Spontaneous
  Country: US (occurrence: US)
  Receive Date: 20220808
  Receipt Date: 20220808
  Transmission Date: 20221027
  Serious: Yes (Other)
  Sender: FDA-Public Use
  Company Number: US-SA-SAC20220805000010

PATIENT
  Age: 64 Year
  Sex: Female

DRUGS (1)
  1. ZANTAC [Suspect]
     Active Substance: RANITIDINE HYDROCHLORIDE
     Indication: Hyperchlorhydria
     Dosage: UNKNOWN AT THIS TIME; QD
     Route: 065
     Dates: start: 200910, end: 201910

REACTIONS (1)
  - Colorectal cancer stage I [Recovering/Resolving]

NARRATIVE: CASE EVENT DATE: 20130906
